FAERS Safety Report 6428822-6 (Version None)
Quarter: 2009Q4

REPORT INFORMATION
  Report Type: 
  Country: None (occurrence: None)
  Receive Date: 20091102
  Receipt Date: 20091019
  Transmission Date: 20100525
  Serious: Yes (Hospitalization)
  Sender: FDA-Public Use
  Company Number: 230438J09USA

PATIENT
  Age: 55 Year
  Sex: Female
  Weight: 86 kg

DRUGS (10)
  1. REBIF [Suspect]
     Indication: MULTIPLE SCLEROSIS
     Dosage: 22 MCG, 3 IN 1 WEEKS, SUBCUTANEOUS
     Route: 058
     Dates: start: 20090805, end: 20090831
  2. DETROL LA [Concomitant]
  3. LISINOPRIL WITH HYDROCHLOROTHIAZIDE (PRINZIDE /00977901/) [Concomitant]
  4. BACLOFEN [Concomitant]
  5. DARVOCET [Concomitant]
  6. CYMBALTA [Concomitant]
  7. PROTONIX [Concomitant]
  8. CARDIZEM (DILTIAZEM /00489701/) [Concomitant]
  9. CLONAZEPAM [Concomitant]
  10. LUNESTA [Concomitant]

REACTIONS (23)
  - AGITATION [None]
  - ALANINE AMINOTRANSFERASE INCREASED [None]
  - ASPARTATE AMINOTRANSFERASE INCREASED [None]
  - BLOOD ALKALINE PHOSPHATASE INCREASED [None]
  - BLOOD BILIRUBIN INCREASED [None]
  - CHEST PAIN [None]
  - CONDITION AGGRAVATED [None]
  - CONFUSIONAL STATE [None]
  - DELIRIUM [None]
  - DISCOMFORT [None]
  - ESCHERICHIA URINARY TRACT INFECTION [None]
  - FALL [None]
  - FIBRIN D DIMER INCREASED [None]
  - GAMMA-GLUTAMYLTRANSFERASE INCREASED [None]
  - HAEMATOCRIT DECREASED [None]
  - HAEMOGLOBIN DECREASED [None]
  - MENTAL STATUS CHANGES [None]
  - MULTIPLE SCLEROSIS [None]
  - NOSOCOMIAL INFECTION [None]
  - PNEUMONIA [None]
  - RADICULOPATHY [None]
  - RHABDOMYOLYSIS [None]
  - SCREAMING [None]
